FAERS Safety Report 18533242 (Version 1)
Quarter: 2020Q4

REPORT INFORMATION
  Report Type: Spontaneous
  Country: US (occurrence: US)
  Receive Date: 20201120
  Receipt Date: 20201120
  Transmission Date: 20210114
  Serious: No
  Sender: FDA-Public Use
  Company Number: None

PATIENT
  Sex: Male

DRUGS (1)
  1. MYCOPHENOLATE [Suspect]
     Active Substance: MYCOPHENOLIC ACID
     Indication: PULMONARY FIBROSIS
     Route: 048
     Dates: start: 20200826, end: 202011

REACTIONS (2)
  - Therapy interrupted [None]
  - Drug ineffective [None]
